FAERS Safety Report 7051901-X (Version None)
Quarter: 2010Q4

REPORT INFORMATION
  Report Type: 
  Country: None (occurrence: None)
  Receive Date: 20101019
  Receipt Date: 20101008
  Transmission Date: 20110411
  Serious: Yes (Other)
  Sender: FDA-Public Use
  Company Number: US-JNJFOC-20100706951

PATIENT
  Sex: Female
  Weight: 109.77 kg

DRUGS (11)
  1. REMICADE [Suspect]
     Indication: RHEUMATOID ARTHRITIS
     Route: 042
  2. REMICADE [Suspect]
     Route: 042
  3. SOTALOL [Concomitant]
  4. INSULIN [Concomitant]
     Indication: DIABETES MELLITUS
  5. NEXIUM [Concomitant]
  6. PREMARIN [Concomitant]
  7. TRAMADOL HCL [Concomitant]
  8. TRIAMTERENE [Concomitant]
  9. ARAVA [Concomitant]
     Indication: RHEUMATOID ARTHRITIS
  10. ARAVA [Concomitant]
  11. LISINOPRIL [Concomitant]

REACTIONS (1)
  - HEPATIC STEATOSIS [None]
